FAERS Safety Report 8336380-4 (Version None)
Quarter: 2012Q2

REPORT INFORMATION
  Report Type: 
  Country: None (occurrence: None)
  Receive Date: 20120504
  Receipt Date: 20120427
  Transmission Date: 20120825
  Serious: Yes (Other)
  Sender: FDA-Public Use
  Company Number: PHEH2012US009062

PATIENT
  Sex: Female

DRUGS (18)
  1. REVLIMID [Concomitant]
     Dosage: 5 MG/DAY
     Dates: start: 20120220
  2. DEXAMETHASONE [Concomitant]
     Dosage: 10 MG, 2 DAYS PER WEEK
     Dates: start: 20120402
  3. FUROSEMIDE [Concomitant]
     Dosage: 20 MG, UNK
  4. LEVOTHYROXINE SODIUM [Concomitant]
     Dosage: 137 UG, UNK
  5. METOPROLOL TARTRATE [Concomitant]
     Dosage: 50 MG, UNK
  6. REVLIMID [Concomitant]
     Indication: THROMBOCYTOPENIA
     Dosage: UNK UKN, UNK
     Dates: start: 20120120, end: 20120313
  7. DEXAMETHASONE [Concomitant]
     Indication: NEUTROPENIA
     Dosage: 10 MG 2X/WEEK
     Dates: start: 20120120, end: 20120313
  8. DEXAMETASON [Concomitant]
     Dosage: 4 MG, UNK
  9. PRILOSEC [Concomitant]
     Dosage: 20 MG, 1 TWICE A DAY
  10. DEXAMETHASONE [Concomitant]
     Dosage: UNK
     Dates: start: 20120402
  11. CLOBETASOL PROPIONATE [Concomitant]
     Dosage: 0.05 PERCENT
  12. CYANOCOBALAMIN [Concomitant]
     Dosage: 1000 MCG/ML
  13. POTASSIUM CHLORIDE [Concomitant]
     Dosage: 20 MEQ, UNK
  14. EXJADE [Suspect]
     Indication: IRON OVERLOAD
     Dosage: 250 MG, QID
     Route: 048
     Dates: start: 20100724
  15. REVLIMID [Concomitant]
     Indication: NEUTROPENIA
     Dosage: 5 MG, 1 DAILYX21 DAYS OUT OF 28 DAYS
  16. REVLIMID [Concomitant]
     Dosage: 5 MG, UNK
     Dates: start: 20120410
  17. PLATELETS [Concomitant]
  18. DECADRON [Concomitant]
     Dosage: 10MG PO 2X/WEEK
     Route: 048

REACTIONS (4)
  - BLOOD PRESSURE DIASTOLIC DECREASED [None]
  - THROMBOCYTOPENIA [None]
  - PETECHIAE [None]
  - HAEMOGLOBIN DECREASED [None]
